FAERS Safety Report 16170863 (Version 1)
Quarter: 2019Q2

REPORT INFORMATION
  Report Type: Spontaneous
  Country: US (occurrence: US)
  Receive Date: 20190408
  Receipt Date: 20190408
  Transmission Date: 20190711
  Serious: No
  Sender: FDA-Public Use
  Company Number: US-TEVA-2019-US-1026690

PATIENT
  Sex: Male

DRUGS (35)
  1. HIPREX TAB [Concomitant]
     Route: 065
     Dates: start: 20160426
  2. HYDRALAZINE TAB [Concomitant]
     Route: 065
     Dates: start: 20170828
  3. POT CHLORIDE TAB 10 MEQ ER [Concomitant]
     Dosage: EXTENDED RELEASE TABLET
     Route: 065
     Dates: start: 20171011
  4. ALPRAZOLAM TABLET [Concomitant]
     Active Substance: ALPRAZOLAM
     Route: 065
     Dates: start: 20181210
  5. ASPIRIN. [Concomitant]
     Active Substance: ASPIRIN
     Dosage: CHEWABLE
     Route: 065
     Dates: start: 20160426
  6. POT CHLORIDE TAB 10 MEQ ER [Concomitant]
     Dosage: EXTENDED RELEASE TABLET
     Route: 065
     Dates: start: 20190222
  7. POTASSIUM TAB [Concomitant]
     Route: 065
     Dates: start: 20160426
  8. VITAMIN C TAB [Concomitant]
     Route: 065
     Dates: start: 20160426
  9. COPAXONE [Suspect]
     Active Substance: GLATIRAMER ACETATE
     Indication: MULTIPLE SCLEROSIS
     Dosage: 40 MILLIGRAM DAILY;
     Route: 058
  10. FERROUS SULF TAB [Concomitant]
     Route: 065
     Dates: start: 20160426
  11. MIDODRINE TAB [Concomitant]
     Route: 065
     Dates: start: 20160426
  12. MUPIROCIN OIN [Concomitant]
     Route: 065
     Dates: start: 20190221
  13. PROBIOTIC CHW [Concomitant]
     Dosage: FORM OF ADMIN: CHEWABLE
     Route: 065
     Dates: start: 20160426
  14. CRESTOR TAB [Concomitant]
     Route: 065
     Dates: start: 20160426
  15. FAMVIR TAB [Concomitant]
     Route: 065
     Dates: start: 20160426
  16. GAMMAGARD [Concomitant]
     Active Substance: HUMAN IMMUNOGLOBULIN G
     Dosage: FORM STRENGTH: 1 GM/10 ML
     Route: 065
     Dates: start: 20160426
  17. ROSUVASTATIN TAB [Concomitant]
     Active Substance: ROSUVASTATIN
     Route: 065
     Dates: start: 20190122
  18. ZANAFLEX TAB [Concomitant]
     Route: 065
     Dates: start: 20181227
  19. CEFADROXIL CAP [Concomitant]
     Route: 065
     Dates: start: 20180507
  20. CLOTRIM/BETA CRE DIPROP [Concomitant]
     Route: 065
     Dates: start: 20190104
  21. MENS MULTI TAB PLUS [Concomitant]
     Route: 065
     Dates: start: 20160426
  22. METHENAM HIP TAB [Concomitant]
     Route: 065
     Dates: start: 20180128
  23. POT CHLORIDE TAB 10 MEQ ER [Concomitant]
     Dosage: EXTENDED RELEASE TABLET
     Route: 065
     Dates: start: 20190124
  24. ROSUVASTATIN TAB [Concomitant]
     Active Substance: ROSUVASTATIN
     Route: 065
     Dates: start: 20180926
  25. VITAMIN E CAP [Concomitant]
     Dosage: FORM STRENGTH: 400 UNIT
     Route: 065
     Dates: start: 20160426
  26. ROSUVASTATIN TAB [Concomitant]
     Active Substance: ROSUVASTATIN
     Route: 065
     Dates: start: 20181226
  27. XANAX TAB [Concomitant]
     Route: 065
     Dates: start: 20160426
  28. ZANAFLEX TAB [Concomitant]
     Route: 065
     Dates: start: 20180702
  29. SOLU-MEDROL INJ [Concomitant]
     Route: 065
     Dates: start: 20160426
  30. ZANAFLEX CAP [Concomitant]
     Route: 065
     Dates: start: 20160426
  31. ALPRAZOLAM TABLET [Concomitant]
     Active Substance: ALPRAZOLAM
     Route: 065
     Dates: start: 20180516
  32. CALCIUM CARB TABLET [Concomitant]
     Route: 065
     Dates: start: 20180426
  33. LORATADINE TAB [Concomitant]
     Route: 065
     Dates: start: 20160426
  34. POT CHLORIDE TAB 10 MEQ ER [Concomitant]
     Dosage: EXTENDED RELEASE TABLET
     Route: 065
     Dates: start: 20181020
  35. PROCHLORPER TAB 10MG [Concomitant]
     Route: 065
     Dates: start: 20190219

REACTIONS (2)
  - Asthenia [Recovered/Resolved]
  - Therapy change [Unknown]
